FAERS Safety Report 14626245 (Version 2)
Quarter: 2018Q1

REPORT INFORMATION
  Report Type: Spontaneous
  Country: JP (occurrence: JP)
  Receive Date: 20180312
  Receipt Date: 20180320
  Transmission Date: 20180509
  Serious: Yes (Hospitalization)
  Sender: FDA-Public Use
  Company Number: PHJP2018JP005806

PATIENT
  Sex: Male

DRUGS (2)
  1. JADENU [Suspect]
     Active Substance: DEFERASIROX
     Indication: APLASTIC ANAEMIA
     Dosage: 720 MG, UNK
     Route: 048
     Dates: start: 201802, end: 201802
  2. EXJADE [Suspect]
     Active Substance: DEFERASIROX
     Indication: APLASTIC ANAEMIA
     Dosage: 625 MG, UNK
     Route: 048
     Dates: end: 201802

REACTIONS (3)
  - Renal disorder [Recovered/Resolved]
  - Concomitant disease aggravated [Recovered/Resolved]
  - Blood creatinine increased [Recovered/Resolved]

NARRATIVE: CASE EVENT DATE: 201802
